FAERS Safety Report 20393902 (Version 1)
Quarter: 2022Q1

REPORT INFORMATION
  Report Type: Spontaneous
  Country: US (occurrence: US)
  Receive Date: 20220129
  Receipt Date: 20220129
  Transmission Date: 20220423
  Serious: No
  Sender: FDA-Public Use
  Company Number: US-HETERO-HET2022US00170

PATIENT

DRUGS (2)
  1. RITONAVIR [Suspect]
     Active Substance: RITONAVIR
     Indication: Product used for unknown indication
     Dosage: 3 TABLETS AT A TIME AND ITS TWO TIMES A DAY
     Route: 065
     Dates: start: 20220118
  2. MUCINEX FAST MAX SEVERE CONGESTION + COLD [Concomitant]
     Indication: Nasal congestion
     Dosage: UNK
     Route: 065

REACTIONS (2)
  - Therapeutic response unexpected [Unknown]
  - Dysgeusia [Recovering/Resolving]

NARRATIVE: CASE EVENT DATE: 20220101
